FAERS Safety Report 5776517-4 (Version None)
Quarter: 2008Q2

REPORT INFORMATION
  Report Type: 
  Country: None (occurrence: None)
  Receive Date: 20080616
  Receipt Date: 20080604
  Transmission Date: 20081010
  Serious: Yes (Hospitalization)
  Sender: FDA-Public Use
  Company Number: GXKR2008US04756

PATIENT
  Age: 53 Year
  Sex: Female

DRUGS (5)
  1. VENLAFAXINE HCL [Suspect]
     Indication: DEPRESSION
     Dosage: 75 MG, QD
  2. FLUOXETINE [Suspect]
     Indication: DEPRESSION
     Dosage: 40 MG, QD
  3. METHADONE HCL [Suspect]
     Indication: DRUG DEPENDENCE
     Dosage: 50 MG, QD
  4. OLANZAPINE [Concomitant]
  5. BUPROPION HCL [Concomitant]

REACTIONS (6)
  - DELIRIUM [None]
  - DRUG INEFFECTIVE [None]
  - DRUG INTERACTION [None]
  - INFECTION [None]
  - PNEUMONIA [None]
  - SEROTONIN SYNDROME [None]
